FAERS Safety Report 9241547 (Version 2)
Quarter: 2013Q2

REPORT INFORMATION
  Report Type: Spontaneous
  Country: JP (occurrence: JP)
  Receive Date: 20130419
  Receipt Date: 20130610
  Transmission Date: 20140414
  Serious: Yes (Life-Threatening, Hospitalization)
  Sender: FDA-Public Use
  Company Number: JP-EISAI INC-E7389-03750-SPO-JP

PATIENT
  Age: 54 Year
  Sex: Female

DRUGS (5)
  1. HALAVEN [Suspect]
     Indication: BREAST CANCER METASTATIC
     Route: 041
     Dates: start: 20130313, end: 20130320
  2. HALAVEN [Suspect]
     Route: 041
     Dates: start: 20130514
  3. CAPECITABINE [Suspect]
     Indication: BREAST CANCER METASTATIC
     Route: 048
     Dates: start: 20130313, end: 20130320
  4. CAPECITABINE [Suspect]
     Route: 048
     Dates: start: 20120419, end: 20130514
  5. CAPECITABINE [Suspect]
     Route: 048
     Dates: start: 20130514

REACTIONS (1)
  - Renal failure acute [Recovering/Resolving]
